FAERS Safety Report 10656942 (Version 1)
Quarter: 2014Q4

REPORT INFORMATION
  Report Type: Report from Study
  Country: US (occurrence: US)
  Receive Date: 20141217
  Receipt Date: 20141217
  Transmission Date: 20150529
  Serious: Yes (Other)
  Sender: FDA-Public Use
  Company Number: US-ROCHE-1504847

PATIENT

DRUGS (3)
  1. TIPIFARNIB [Suspect]
     Active Substance: TIPIFARNIB
     Indication: BREAST CANCER METASTATIC
     Dosage: 200-400 MG ON DAYS 1-21
     Route: 048
  2. TRASTUZUMAB [Suspect]
     Active Substance: TRASTUZUMAB
     Indication: BREAST CANCER METASTATIC
     Dosage: DAY 1, LOADING DOSE
     Route: 042
  3. TRASTUZUMAB [Suspect]
     Active Substance: TRASTUZUMAB
     Dosage: ON DAYS 8, 15 AND 22
     Route: 042

REACTIONS (6)
  - Nausea [Unknown]
  - Vomiting [Unknown]
  - Transaminases increased [Unknown]
  - Thrombocytopenia [Unknown]
  - Neutropenia [Unknown]
  - Diarrhoea [Unknown]
